FAERS Safety Report 17758342 (Version 3)
Quarter: 2020Q2

REPORT INFORMATION
  Report Type: Report from Study
  Country: US (occurrence: US)
  Receive Date: 20200507
  Receipt Date: 20200527
  Transmission Date: 20200714
  Serious: Yes (Hospitalization)
  Sender: FDA-Public Use
  Company Number: US-TAIHO ONCOLOGY  INC-EU-2020-01576

PATIENT
  Age: 68 Year
  Sex: Male
  Weight: 96.8 kg

DRUGS (13)
  1. FOLATE [Concomitant]
     Active Substance: FOLATE SODIUM
  2. LONSURF [Suspect]
     Active Substance: TIPIRACIL HYDROCHLORIDE\TRIFLURIDINE
     Indication: COLON CANCER METASTATIC
     Dosage: CYCLE 1 TO UNKNOWN CYCLE
     Route: 048
     Dates: start: 20190218, end: 20200408
  3. VITAMIN B12 [Concomitant]
     Active Substance: CYANOCOBALAMIN
     Indication: VITAMIN SUPPLEMENTATION
     Route: 048
  4. CALTRATE W/VITAMIN D [Concomitant]
     Dosage: 600/400: 1 TABLET DAILY
     Route: 048
  5. MAGNESIUM [Concomitant]
     Active Substance: MAGNESIUM
  6. KCL [Concomitant]
     Active Substance: POTASSIUM CHLORIDE
  7. COLACE [Concomitant]
     Active Substance: DOCUSATE SODIUM
  8. ZOFRAN [Concomitant]
     Active Substance: ONDANSETRON HYDROCHLORIDE
  9. DULCOLAX NOS [Concomitant]
     Active Substance: BISACODYL OR DOCUSATE SODIUM
  10. CALCIUM [Concomitant]
     Active Substance: CALCIUM
  11. DOCUSATE SODIUM. [Concomitant]
     Active Substance: DOCUSATE SODIUM
     Dosage: HOLD: IF LOOSE BOWEL
     Route: 048
  12. MAGNESIUM OXIDE. [Concomitant]
     Active Substance: MAGNESIUM OXIDE
     Indication: SUPPLEMENTATION THERAPY
     Route: 048
  13. SENNA [Concomitant]
     Active Substance: SENNA LEAF\SENNOSIDES\SENNOSIDES A AND B
     Dosage: 2 TABLETS AT BEDTIME?HOLD: IF LOOSE BOWEL
     Route: 048

REACTIONS (5)
  - Pain in extremity [Unknown]
  - Ascites [Unknown]
  - Oedema peripheral [Not Recovered/Not Resolved]
  - Diarrhoea [Unknown]
  - Disease progression [Unknown]

NARRATIVE: CASE EVENT DATE: 2019
